FAERS Safety Report 14426207 (Version 3)
Quarter: 2018Q1

REPORT INFORMATION
  Report Type: Spontaneous
  Country: US (occurrence: US)
  Receive Date: 20180123
  Receipt Date: 20180314
  Transmission Date: 20180509
  Serious: Yes (Hospitalization)
  Sender: FDA-Public Use
  Company Number: US-ACTELION-A-NJ2018-166221

PATIENT
  Age: 64 Year
  Sex: Male
  Weight: 75.74 kg

DRUGS (3)
  1. VELETRI [Suspect]
     Active Substance: EPOPROSTENOL
     Indication: PULMONARY ARTERIAL HYPERTENSION
     Dosage: 19 NG/KG, PER MIN
     Route: 042
  2. SILDENAFIL CITRATE. [Concomitant]
     Active Substance: SILDENAFIL CITRATE
  3. ELIQUIS [Concomitant]
     Active Substance: APIXABAN

REACTIONS (10)
  - Oesophageal achalasia [Unknown]
  - Blood pressure increased [Unknown]
  - Pain in jaw [Unknown]
  - Device breakage [Unknown]
  - Atrial fibrillation [Unknown]
  - Eating disorder [Unknown]
  - Catheter management [Unknown]
  - Device leakage [Unknown]
  - Myalgia [Unknown]
  - Oesophagocardiomyotomy [Unknown]

NARRATIVE: CASE EVENT DATE: 201801
